FAERS Safety Report 18150734 (Version 6)
Quarter: 2021Q1

REPORT INFORMATION
  Report Type: Report from Study
  Country: US (occurrence: US)
  Receive Date: 20200814
  Receipt Date: 20210219
  Transmission Date: 20210419
  Serious: No
  Sender: FDA-Public Use
  Company Number: US-BIOVITRUM-2020US4192

PATIENT
  Age: 71 Year
  Sex: Female

DRUGS (28)
  1. KINERET [Suspect]
     Active Substance: ANAKINRA
     Route: 058
     Dates: start: 20200722, end: 20201022
  2. DILTIAZEM. [Concomitant]
     Active Substance: DILTIAZEM
  3. LIPITOR [Concomitant]
     Active Substance: ATORVASTATIN CALCIUM
  4. VITAMIN D3 [Concomitant]
     Active Substance: CHOLECALCIFEROL
  5. AMLODIPINE [Concomitant]
     Active Substance: AMLODIPINE BESYLATE
  6. KINERET [Suspect]
     Active Substance: ANAKINRA
     Indication: ARTERITIS
     Route: 058
     Dates: start: 20200723
  7. ALBUTEROL. [Concomitant]
     Active Substance: ALBUTEROL
  8. SYNTHROID [Concomitant]
     Active Substance: LEVOTHYROXINE SODIUM
  9. MEDROL [Concomitant]
     Active Substance: METHYLPREDNISOLONE
  10. RESTASIS [Concomitant]
     Active Substance: CYCLOSPORINE
  11. CITRUCEL CALCIUM [Concomitant]
  12. KINERET [Suspect]
     Active Substance: ANAKINRA
     Indication: OSTEOARTHRITIS
     Route: 058
     Dates: start: 20200803
  13. REGLAN [Concomitant]
     Active Substance: METOCLOPRAMIDE HYDROCHLORIDE
  14. ADVAIR HFA [Concomitant]
     Active Substance: FLUTICASONE PROPIONATE\SALMETEROL XINAFOATE
  15. PANTOPRAZOLE [Concomitant]
     Active Substance: PANTOPRAZOLE
  16. KINERET [Suspect]
     Active Substance: ANAKINRA
     Route: 058
     Dates: start: 20200807
  17. NORTRIPTYLINE [Concomitant]
     Active Substance: NORTRIPTYLINE
  18. INSULIN 70/30 [Concomitant]
     Active Substance: INSULIN HUMAN
  19. SPIRINOLACTONE [Concomitant]
     Active Substance: SPIRONOLACTONE
  20. LASIX [Concomitant]
     Active Substance: FUROSEMIDE
  21. FAMOTIDINE. [Concomitant]
     Active Substance: FAMOTIDINE
  22. VENTOLIN [Concomitant]
     Active Substance: ALBUTEROL SULFATE
  23. SINGULAIR [Concomitant]
     Active Substance: MONTELUKAST SODIUM
  24. PLAVIX [Concomitant]
     Active Substance: CLOPIDOGREL BISULFATE
  25. KINERET [Suspect]
     Active Substance: ANAKINRA
     Route: 058
     Dates: start: 20200121
  26. KINERET [Suspect]
     Active Substance: ANAKINRA
     Route: 058
     Dates: start: 20200723
  27. CYTOMEL [Concomitant]
     Active Substance: LIOTHYRONINE SODIUM
  28. PRESERVISION [Concomitant]
     Active Substance: MINERALS\VITAMINS

REACTIONS (8)
  - Blood sodium decreased [Unknown]
  - Cardiac disorder [Unknown]
  - Feeling abnormal [Unknown]
  - Injection site rash [Recovered/Resolved]
  - Injection site pain [Not Recovered/Not Resolved]
  - Laboratory test abnormal [Recovered/Resolved]
  - Blood cholesterol increased [Unknown]
  - Off label use [Unknown]

NARRATIVE: CASE EVENT DATE: 20200722
